FAERS Safety Report 4351079-7 (Version None)
Quarter: 2004Q2

REPORT INFORMATION
  Report Type: 
  Country: None (occurrence: None)
  Receive Date: 20040427
  Receipt Date: 20040416
  Transmission Date: 20050107
  Serious: Yes (Hospitalization)
  Sender: FDA-Public Use
  Company Number: JP-JNJFOC-20040200974

PATIENT
  Age: 86 Year
  Sex: Male

DRUGS (3)
  1. ITRACONAZOLE [Suspect]
     Indication: ONYCHOMYCOSIS
     Dosage: 50 MG, 1 IN 1 DAY, ORAL
     Route: 048
     Dates: start: 20030901, end: 20040122
  2. VOGLIBOSE (VOGLIBOSE) [Concomitant]
  3. GLYBURIDE [Concomitant]

REACTIONS (1)
  - RHABDOMYOLYSIS [None]
